FAERS Safety Report 6145639-0 (Version None)
Quarter: 2009Q2

REPORT INFORMATION
  Report Type: 
  Country: None (occurrence: None)
  Receive Date: 20090407
  Receipt Date: 20090330
  Transmission Date: 20091009
  Serious: Yes (Hospitalization)
  Sender: FDA-Public Use
  Company Number: JP-JNJFOC-20090305567

PATIENT
  Age: 53 Year
  Sex: Female
  Weight: 44 kg

DRUGS (2)
  1. LEVOFLOXACIN [Suspect]
     Indication: PNEUMONIA
     Route: 065
  2. CLARITHROMYCIN [Concomitant]
     Route: 065

REACTIONS (1)
  - ALVEOLITIS ALLERGIC [None]
